FAERS Safety Report 5731263-8 (Version None)
Quarter: 2008Q2

REPORT INFORMATION
  Report Type: 
  Country: None (occurrence: None)
  Receive Date: 20080505
  Receipt Date: 20080428
  Transmission Date: 20081010
  Serious: Yes (Death, Hospitalization)
  Sender: FDA-Public Use
  Company Number: US023378

PATIENT
  Age: 71 Year
  Sex: Female
  Weight: 73.4 kg

DRUGS (2)
  1. TRISENOX [Suspect]
     Indication: MYELOFIBROSIS
     Dosage: 15.05 MG DAYS 1-5 AND 8-12 INTRAVENOUS
     Route: 042
     Dates: start: 20080423, end: 20080425
  2. CYTARABINE [Suspect]
     Indication: MYELOFIBROSIS
     Dosage: 16.2 MG 16.2 TWICE DAILY DAY 1-14 SUBCUTANEOUS
     Route: 058
     Dates: start: 20080423, end: 20080425

REACTIONS (3)
  - ANURIA [None]
  - CEREBROVASCULAR ACCIDENT [None]
  - WHITE BLOOD CELL COUNT INCREASED [None]
